FAERS Safety Report 4440892-3 (Version None)
Quarter: 2004Q3

REPORT INFORMATION
  Report Type: 
  Country: None (occurrence: None)
  Receive Date: 20040728
  Receipt Date: 20040406
  Transmission Date: 20050211
  Serious: No
  Sender: FDA-Public Use
  Company Number: USA040156614

PATIENT
  Age: 44 Year
  Sex: Male
  Weight: 91 kg

DRUGS (8)
  1. STRATTERA [Suspect]
     Indication: ATTENTION DEFICIT/HYPERACTIVITY DISORDER
     Dosage: 80 MG/DAY
     Route: 048
     Dates: start: 20040110
  2. LIPITOR [Concomitant]
  3. MERBENTAL [Concomitant]
  4. NEXIUM [Concomitant]
  5. CLARITIN [Concomitant]
  6. VALTREX [Concomitant]
  7. FLONASE [Concomitant]
  8. WELLBUTRIN [Concomitant]

REACTIONS (6)
  - BLOOD PRESSURE DIASTOLIC INCREASED [None]
  - DRY MOUTH [None]
  - DYSURIA [None]
  - ERECTILE DYSFUNCTION [None]
  - HEADACHE [None]
  - PARAESTHESIA [None]
